FAERS Safety Report 4763923-X (Version None)
Quarter: 2005Q3

REPORT INFORMATION
  Report Type: 
  Country: None (occurrence: None)
  Receive Date: 20050906
  Receipt Date: 20050823
  Transmission Date: 20060218
  Serious: Yes (Hospitalization)
  Sender: FDA-Public Use
  Company Number: 2005PV001150

PATIENT
  Age: 67 Year
  Sex: Male

DRUGS (2)
  1. BYETTA [Suspect]
     Indication: DIABETES MELLITUS NON-INSULIN-DEPENDENT
     Dosage: 5 MCG;BID;SC
     Route: 058
     Dates: start: 20050815, end: 20050818
  2. GLIPIZIDE [Concomitant]

REACTIONS (6)
  - DIARRHOEA [None]
  - HYPERKALAEMIA [None]
  - HYPOGLYCAEMIA [None]
  - NAUSEA [None]
  - PALPITATIONS [None]
  - RENAL FAILURE ACUTE [None]
